FAERS Safety Report 4503007-9 (Version None)
Quarter: 2004Q4

REPORT INFORMATION
  Report Type: 
  Country: None (occurrence: None)
  Receive Date: 20041112
  Receipt Date: 20041102
  Transmission Date: 20050328
  Serious: Yes (Other)
  Sender: FDA-Public Use
  Company Number: 2004-09-0425

PATIENT
  Age: 54 Year
  Sex: Male
  Weight: 72 kg

DRUGS (3)
  1. REBETOL [Suspect]
     Indication: HEPATITIS C
     Dosage: 800 MG QD ORAL
     Route: 048
     Dates: start: 20040814, end: 20040831
  2. INTRON A [Suspect]
     Indication: HEPATITIS C
     Dosage: 6 MU QD INTRAMUSCULAR
     Route: 030
     Dates: start: 20040814, end: 20040827
  3. NORVASC [Concomitant]

REACTIONS (3)
  - RETINOPATHY [None]
  - VISUAL DISTURBANCE [None]
  - VITREOUS FLOATERS [None]
